FAERS Safety Report 8041437-1 (Version None)
Quarter: 2012Q1

REPORT INFORMATION
  Report Type: 
  Country: None (occurrence: None)
  Receive Date: 20120112
  Receipt Date: 20120109
  Transmission Date: 20120608
  Serious: Yes (Other)
  Sender: FDA-Public Use
  Company Number: US-PFIZER INC-2012006981

PATIENT
  Sex: Female
  Weight: 61.224 kg

DRUGS (1)
  1. LATANOPROST [Suspect]
     Indication: GLAUCOMA
     Dosage: UNK
     Route: 047
     Dates: start: 20111001, end: 20120101

REACTIONS (2)
  - EYE DISORDER [None]
  - EYE HAEMORRHAGE [None]
